FAERS Safety Report 15366053 (Version 1)
Quarter: 2018Q3

REPORT INFORMATION
  Report Type: Spontaneous
  Country: US (occurrence: US)
  Receive Date: 20180910
  Receipt Date: 20180910
  Transmission Date: 20181010
  Serious: No
  Sender: FDA-Public Use
  Company Number: US-JNJFOC-20180801770

PATIENT
  Age: 45 Year
  Sex: Female

DRUGS (4)
  1. TREMFYA [Suspect]
     Active Substance: GUSELKUMAB
     Indication: PSORIASIS
     Route: 058
     Dates: start: 2018
  2. OXYCODONE [Concomitant]
     Active Substance: OXYCODONE
     Route: 065
  3. XANAX [Concomitant]
     Active Substance: ALPRAZOLAM
     Route: 065
  4. ZOFRAN [Concomitant]
     Active Substance: ONDANSETRON HYDROCHLORIDE
     Route: 065

REACTIONS (1)
  - Inappropriate schedule of drug administration [Unknown]

NARRATIVE: CASE EVENT DATE: 20180731
